FAERS Safety Report 9349135 (Version 2)
Quarter: 2013Q3

REPORT INFORMATION
  Report Type: Spontaneous
  Country: IT (occurrence: IT)
  Receive Date: 20130614
  Receipt Date: 20130812
  Transmission Date: 20140515
  Serious: Yes (Hospitalization)
  Sender: FDA-Public Use
  Company Number: IT-ASTRAZENECA-2013SE41042

PATIENT
  Age: 16781 Day
  Sex: Female

DRUGS (5)
  1. OMEPRAZOLE [Suspect]
     Route: 048
     Dates: start: 20130604, end: 20130604
  2. BRUFEN [Suspect]
     Indication: BACK PAIN
     Route: 048
     Dates: start: 20130604, end: 20130604
  3. TACHIFLU [Concomitant]
     Dates: start: 20130604, end: 20130604
  4. EVRA [Concomitant]
  5. CORTICOSTEROID [Concomitant]
     Indication: LUMBAR HERNIA
     Dosage: IN THE MORNING

REACTIONS (5)
  - Dyspnoea [Recovering/Resolving]
  - Tachycardia [Recovering/Resolving]
  - Erythema [Recovering/Resolving]
  - Lip swelling [Recovering/Resolving]
  - Pruritus generalised [Recovering/Resolving]
